FAERS Safety Report 13093247 (Version 1)
Quarter: 2017Q1

REPORT INFORMATION
  Report Type: Spontaneous
  Country: US (occurrence: US)
  Receive Date: 20170106
  Receipt Date: 20170106
  Transmission Date: 20170428
  Serious: Yes (Hospitalization)
  Sender: FDA-Public Use
  Company Number: US-JNJFOC-20170104180

PATIENT
  Sex: Female

DRUGS (7)
  1. ZOLOFT [Concomitant]
     Active Substance: SERTRALINE HYDROCHLORIDE
     Route: 048
  2. BACTRIM DS [Concomitant]
     Active Substance: SULFAMETHOXAZOLE\TRIMETHOPRIM
     Dosage: 80-160MG
     Route: 048
  3. IMBRUVICA [Suspect]
     Active Substance: IBRUTINIB
     Indication: B-CELL LYMPHOMA
     Route: 048
  4. MEVACOR [Concomitant]
     Active Substance: LOVASTATIN
     Route: 048
  5. VITAMIN D3 [Concomitant]
     Active Substance: CHOLECALCIFEROL
     Route: 048
  6. LORATADINE. [Concomitant]
     Active Substance: LORATADINE
     Route: 048
  7. PRILOSEC [Concomitant]
     Active Substance: OMEPRAZOLE MAGNESIUM
     Route: 048

REACTIONS (10)
  - Hypokalaemia [Unknown]
  - Activities of daily living impaired [Unknown]
  - Abdominal pain [Unknown]
  - Abdominal mass [Unknown]
  - Hypertension [Unknown]
  - Cough [Unknown]
  - Obesity [Unknown]
  - Dehydration [Unknown]
  - Vertigo [Unknown]
  - Fatigue [Unknown]
